FAERS Safety Report 10021327 (Version 1)
Quarter: 2014Q1

REPORT INFORMATION
  Report Type: Spontaneous
  Country: US (occurrence: None)
  Receive Date: 20140318
  Receipt Date: 20140318
  Transmission Date: 20141002
  Serious: Yes (Disabling)
  Sender: FDA-Public Use
  Company Number: None

PATIENT
  Age: 55 Year
  Sex: Male

DRUGS (1)
  1. CRESTOR 10 MG ASTRAZENECA [Suspect]
     Indication: LOW DENSITY LIPOPROTEIN INCREASED
     Route: 048
     Dates: start: 20070303, end: 20131231

REACTIONS (5)
  - Myalgia [None]
  - Impaired driving ability [None]
  - Insomnia [None]
  - Impaired work ability [None]
  - Pain in extremity [None]
